FAERS Safety Report 9943148 (Version 1)
Quarter: 2014Q1

REPORT INFORMATION
  Report Type: Spontaneous
  Country: US (occurrence: US)
  Receive Date: 20140303
  Receipt Date: 20140303
  Transmission Date: 20141002
  Serious: Yes (Death)
  Sender: FDA-Public Use
  Company Number: US-INCYTE CORPORATION-2014IN000534

PATIENT
  Sex: Male

DRUGS (8)
  1. JAKAFI [Suspect]
     Indication: MYELOFIBROSIS
     Dosage: NOT SPECIFIED
  2. ATENOLOL [Concomitant]
  3. ALLOPURINOL [Concomitant]
  4. RAPAFLO [Concomitant]
  5. FLOMAX                             /00889901/ [Concomitant]
  6. LASIX                              /00032601/ [Concomitant]
  7. LEVAQUIN [Concomitant]
  8. FOLIC ACID [Concomitant]

REACTIONS (1)
  - Death [Fatal]
